FAERS Safety Report 14323236 (Version 1)
Quarter: 2017Q4

REPORT INFORMATION
  Report Type: Spontaneous
  Country: TW (occurrence: TW)
  Receive Date: 20171226
  Receipt Date: 20171226
  Transmission Date: 20180321
  Serious: Yes (Hospitalization, Other)
  Sender: FDA-Public Use
  Company Number: TW-VISTAPHARM, INC.-VER201712-001422

PATIENT
  Age: 41 Year
  Sex: Female

DRUGS (1)
  1. VALPROIC ACID. [Suspect]
     Active Substance: VALPROIC ACID
     Indication: BIPOLAR DISORDER
     Dosage: 1500 MG/DAY (1000 MG AT 9 AM AND 500 MG AT NOON)

REACTIONS (3)
  - Drug-disease interaction [Recovered/Resolved]
  - Delirium [Recovered/Resolved]
  - Hyperammonaemia [Recovered/Resolved]
